FAERS Safety Report 4868897-9 (Version None)
Quarter: 2005Q4

REPORT INFORMATION
  Report Type: 
  Country: None (occurrence: None)
  Receive Date: 20051223
  Receipt Date: 20051214
  Transmission Date: 20060501
  Serious: Yes (Death)
  Sender: FDA-Public Use
  Company Number: 2005169904

PATIENT
  Age: 61 Year
  Sex: Male
  Weight: 70 kg

DRUGS (18)
  1. CLINDAMYCIN PHOSPHATE [Suspect]
     Indication: INFECTION
     Dosage: 1200 MG (600 MG, 2 IN 1 D), INTRAVENOUS
     Route: 042
     Dates: start: 20050827, end: 20050906
  2. CEFMETAZON (CEFMETAZOLE SODIUM) (CEFMETAZOLE SODIUM) [Suspect]
     Indication: INFECTION
     Dosage: 2 GRAM (1 GRAM, 2 IN 1 D), INTRAVENOUS
     Route: 042
     Dates: start: 20050827, end: 20050904
  3. CARBENIN (PANIPENEM/BETAMIPRON) (BETAMIPRON, PANIPENEM) [Suspect]
     Indication: INFECTION
     Dosage: 1 GRAM (0.5 GRAM, 2 IN 1 D), INTRAVENOUS
     Route: 042
     Dates: start: 20050905, end: 20050910
  4. AMIODARONE HCL [Suspect]
     Indication: VENTRICULAR TACHYCARDIA
     Dosage: 400 MG (200 MG, 2 IN 1 D), ORAL
     Route: 048
     Dates: start: 20050907, end: 20050910
  5. OMEPRAL (EPRAZOLE) (OMEPRAZOLE) [Concomitant]
  6. BISOLVON (OMHEXINE HYDROCHLORIDE) (BROMHEXINE HYDROCHLORIDE) [Concomitant]
  7. LASIX [Concomitant]
  8. NEOPHAGEN C (GLYCYRRHIZIN/GLYCINE/CYSTIEINE COMBINED DRUG) (ALL OTHER [Concomitant]
  9. ADELAVIN (LIVER EXTRACT/FLAVIN ADENINE DINUCLEOTIDE)(FLAVINE ADENINE D [Concomitant]
  10. ASPENON (APRINDINE HYDROCHLORIDE) (APRINDINE HYDROCHLORIDE) [Concomitant]
  11. DIGILANOGEN C (DESLANOSIDE) (DESLANOSIDE) [Concomitant]
  12. ADONA (CARBAZOCHROME SODIUMSULFONATE) (CARBAMAZOCHROME SODIUM SULFONAT [Concomitant]
  13. NOVO HEPARIN (HEPARIN SODIUM) (HEPARIN CALCIUM) [Concomitant]
  14. NEOAMIYU (AMINO ACID PREPARATIONS FOR RENAL INSUFFICIENCY (2-1) (ALL O [Concomitant]
  15. MINERALIN (MANGANESE CHLORIDE/ZINC SULFATE COMBINED DRUG) (MINERALS  N [Concomitant]
  16. VITAJECT (MULTIPLE VITAMIN FOR TOTAL PARENTERAL NUTRITION 6) ALL OTHER [Concomitant]
  17. HICALIQ (INTRAVENOUS HYPERALIMENTATIVE BASIC SOLUTION 5-2 (CALCIUM GLU [Concomitant]
  18. PANTOSIN (PANTETHINE) (PANTETHINE) [Concomitant]

REACTIONS (8)
  - ALANINE AMINOTRANSFERASE INCREASED [None]
  - ASPARTATE AMINOTRANSFERASE INCREASED [None]
  - BLOOD ALKALINE PHOSPHATASE INCREASED [None]
  - BLOOD BILIRUBIN INCREASED [None]
  - BRADYCARDIA [None]
  - HAEMODIALYSIS [None]
  - LIVER DISORDER [None]
  - VENTRICULAR TACHYCARDIA [None]
